FAERS Safety Report 21090083 (Version 2)
Quarter: 2022Q3

REPORT INFORMATION
  Report Type: Spontaneous
  Country: TW (occurrence: TW)
  Receive Date: 20220715
  Receipt Date: 20220818
  Transmission Date: 20221026
  Serious: Yes (Hospitalization, Other)
  Sender: FDA-Public Use
  Company Number: TW-ZAMBON SWITZERLAND LTD.-2022TW000018

PATIENT

DRUGS (6)
  1. FOSFOMYCIN TROMETHAMINE [Suspect]
     Active Substance: FOSFOMYCIN TROMETHAMINE
     Indication: Urinary tract infection
     Dosage: HIGH DOSE
     Route: 042
  2. COLISTIN [Concomitant]
     Active Substance: COLISTIN
     Indication: Pseudomonas infection
     Dosage: HIGH DOSE
  3. CIPROFLOXACIN [Concomitant]
     Active Substance: CIPROFLOXACIN
     Indication: Pseudomonas infection
     Dosage: HIGH DOSE
  4. UROKINASE [Concomitant]
     Active Substance: UROKINASE
     Dosage: UNK
  5. AMIKACIN [Concomitant]
     Active Substance: AMIKACIN
     Indication: Pseudomonas infection
     Dosage: 500 MG, BID
  6. OXYGEN [Concomitant]
     Active Substance: OXYGEN
     Dosage: UNK

REACTIONS (1)
  - Drug eruption [Unknown]
